FAERS Safety Report 11575888 (Version 2)
Quarter: 2015Q4

REPORT INFORMATION
  Report Type: Spontaneous
  Country: US (occurrence: US)
  Receive Date: 20150930
  Receipt Date: 20151029
  Transmission Date: 20160304
  Serious: No
  Sender: FDA-Public Use
  Company Number: US-SHIRE-US201511676

PATIENT
  Age: 26 Year
  Sex: Male
  Weight: 95.69 kg

DRUGS (6)
  1. COGENTIN [Concomitant]
     Active Substance: BENZTROPINE MESYLATE
     Indication: AKATHISIA
     Dosage: 2 MG, 2X/DAY:BID
     Route: 048
     Dates: start: 20150901
  2. VYVANSE [Suspect]
     Active Substance: LISDEXAMFETAMINE DIMESYLATE
     Dosage: 60 MG, 1X/DAY:QD, DAILY
     Route: 048
     Dates: start: 2015, end: 20150908
  3. VYVANSE [Suspect]
     Active Substance: LISDEXAMFETAMINE DIMESYLATE
     Dosage: 60 MG, 2X/DAY:BID
     Route: 048
     Dates: start: 20150909
  4. HALDOL [Concomitant]
     Active Substance: HALOPERIDOL
     Indication: AKATHISIA
     Dosage: 5 MG, 2X/DAY:BID
     Route: 048
     Dates: start: 20150901
  5. PROPANOLOL                         /00030001/ [Concomitant]
     Active Substance: PROPRANOLOL HYDROCHLORIDE
     Indication: AKATHISIA
     Dosage: 20 MG, 2X/DAY:BID
     Route: 048
     Dates: start: 20150901
  6. VYVANSE [Suspect]
     Active Substance: LISDEXAMFETAMINE DIMESYLATE
     Indication: ATTENTION DEFICIT/HYPERACTIVITY DISORDER
     Dosage: 60 MG, AS REQ^D, AS NEEDED
     Route: 048
     Dates: start: 201412, end: 2015

REACTIONS (3)
  - Off label use [Recovered/Resolved]
  - Prescribed overdose [Not Recovered/Not Resolved]
  - Drug ineffective [Not Recovered/Not Resolved]

NARRATIVE: CASE EVENT DATE: 201412
